FAERS Safety Report 4908923-1 (Version None)
Quarter: 2006Q1

REPORT INFORMATION
  Report Type: 
  Country: None (occurrence: None)
  Receive Date: 20060209
  Receipt Date: 20060201
  Transmission Date: 20060701
  Serious: Yes (Other)
  Sender: FDA-Public Use
  Company Number: 2006016834

PATIENT
  Sex: Male
  Weight: 77.5651 kg

DRUGS (1)
  1. VIAGRA [Suspect]
     Indication: ILL-DEFINED DISORDER
     Dosage: 100 MG (100 MG, 1 ) ORAL
     Route: 048
     Dates: start: 20050101

REACTIONS (2)
  - HYPERTENSION [None]
  - SELF-MEDICATION [None]
